FAERS Safety Report 5336624-7 (Version None)
Quarter: 2007Q2

REPORT INFORMATION
  Report Type: 
  Country: None (occurrence: None)
  Receive Date: 20070524
  Receipt Date: 20070511
  Transmission Date: 20071010
  Serious: Yes (Death, Other)
  Sender: FDA-Public Use
  Company Number: 2007050025

PATIENT
  Age: 39 Year
  Sex: Female
  Weight: 80.6949 kg

DRUGS (16)
  1. SOMA [Suspect]
     Indication: BACK PAIN
     Dosage: ORAL
     Route: 048
  2. CHLORAL HYDRATE [Suspect]
     Indication: INSOMNIA
  3. DIPHENHYDRAMINE HCL [Suspect]
     Indication: ILL-DEFINED DISORDER
  4. CLONAZEPAM [Suspect]
     Indication: ILL-DEFINED DISORDER
  5. DIAZEPAM [Suspect]
     Indication: ILL-DEFINED DISORDER
  6. LORAZEPAM [Suspect]
     Indication: ILL-DEFINED DISORDER
  7. METHOCARBAMOL [Suspect]
     Indication: ILL-DEFINED DISORDER
  8. TAMIFLU [Suspect]
     Indication: INFLUENZA
  9. METHADONE HCL [Concomitant]
  10. NUTROPIN [Concomitant]
  11. VITAMIN B-12 [Concomitant]
  12. IMMUNOGLOBULIN INJECTABLE [Concomitant]
  13. CIPRO [Concomitant]
  14. TOPAMAX [Concomitant]
  15. ACETAMINOPHEN [Concomitant]
  16. ATROPINE [Concomitant]

REACTIONS (15)
  - ACCIDENTAL DEATH [None]
  - AUTOIMMUNE THYROIDITIS [None]
  - CARDIO-RESPIRATORY ARREST [None]
  - CEREBRAL INFARCTION [None]
  - CONTUSION [None]
  - DEHYDRATION [None]
  - DRUG TOXICITY [None]
  - FALL [None]
  - GASTROENTERITIS VIRAL [None]
  - HEPATOMEGALY [None]
  - MYOCARDIAL FIBROSIS [None]
  - PANNICULITIS [None]
  - PLEURAL ADHESION [None]
  - REFUSAL OF TREATMENT BY PATIENT [None]
  - SUBCUTANEOUS ABSCESS [None]
